FAERS Safety Report 6071077-5 (Version None)
Quarter: 2009Q1

REPORT INFORMATION
  Report Type: 
  Country: None (occurrence: None)
  Receive Date: 20090209
  Receipt Date: 20080916
  Transmission Date: 20090719
  Serious: No
  Sender: FDA-Public Use
  Company Number: A0748446A

PATIENT
  Age: 54 Year
  Sex: Female

DRUGS (11)
  1. PAXIL CR [Suspect]
     Route: 048
     Dates: start: 20080906
  2. ONE-A-DAY VITAMIN [Concomitant]
  3. NIFEDIPINE [Concomitant]
  4. DIOVAN [Concomitant]
  5. GABAPENTIN [Concomitant]
  6. XANAX [Concomitant]
  7. FIORICET [Concomitant]
  8. LOMOTIL [Concomitant]
  9. RHINOCORT [Concomitant]
  10. OXYGEN [Concomitant]
  11. ALBUTEROL [Concomitant]

REACTIONS (5)
  - CONSTIPATION [None]
  - DEPRESSION [None]
  - DRUG INEFFECTIVE [None]
  - FLATULENCE [None]
  - INSOMNIA [None]
